FAERS Safety Report 24644709 (Version 1)
Quarter: 2024Q4

REPORT INFORMATION
  Report Type: Spontaneous
  Country: CN (occurrence: CN)
  Receive Date: 20241121
  Receipt Date: 20241121
  Transmission Date: 20250115
  Serious: Yes (Hospitalization)
  Sender: NOVO NORDISK
  Company Number: None

PATIENT
  Age: 44 Year
  Sex: Male
  Weight: 53 kg

DRUGS (2)
  1. NOVOLIN R [Suspect]
     Active Substance: INSULIN HUMAN
     Dosage: UNK (DOSE DECREASED)
     Route: 058
  2. NOVOLIN R [Suspect]
     Active Substance: INSULIN HUMAN
     Indication: Type 2 diabetes mellitus
     Dosage: 16 IU, BID
     Route: 058
     Dates: start: 20240701

REACTIONS (1)
  - Acute painful neuropathy of rapid glycaemic control [Recovering/Resolving]

NARRATIVE: CASE EVENT DATE: 20240801
